FAERS Safety Report 9485682 (Version 1)
Quarter: 2013Q3

REPORT INFORMATION
  Report Type: Spontaneous
  Country: US (occurrence: US)
  Receive Date: 20130829
  Receipt Date: 20130829
  Transmission Date: 20140515
  Serious: Yes (Other)
  Sender: FDA-Public Use
  Company Number: US-JNJFOC-20130808997

PATIENT
  Sex: Female

DRUGS (2)
  1. ZYRTEC IR 10MG TABLET [Suspect]
     Indication: MIDDLE EAR EFFUSION
     Dosage: DAILY
     Route: 048
  2. ZYRTEC IR 10MG TABLET [Suspect]
     Indication: MULTIPLE ALLERGIES
     Dosage: DAILY
     Route: 048

REACTIONS (2)
  - Chromaturia [Unknown]
  - Urinary retention [Unknown]
